FAERS Safety Report 5755958-5 (Version None)
Quarter: 2008Q2

REPORT INFORMATION
  Report Type: 
  Country: None (occurrence: None)
  Receive Date: 20080602
  Receipt Date: 20080521
  Transmission Date: 20081010
  Serious: Yes (Other)
  Sender: FDA-Public Use
  Company Number: US-ELI_LILLY_AND_COMPANY-US200805004499

PATIENT
  Sex: Female

DRUGS (1)
  1. STRATTERA [Suspect]
     Indication: SELF INJURIOUS BEHAVIOUR
     Dosage: 80 MG, DAILY (1/D)

REACTIONS (1)
  - SELF INJURIOUS BEHAVIOUR [None]
